FAERS Safety Report 4649097-4 (Version None)
Quarter: 2005Q2

REPORT INFORMATION
  Report Type: 
  Country: None (occurrence: None)
  Receive Date: 20050429
  Receipt Date: 20050425
  Transmission Date: 20051028
  Serious: Yes (Death)
  Sender: FDA-Public Use
  Company Number: BR-GLAXOSMITHKLINE-A0555872A

PATIENT
  Age: 74 Year
  Sex: Male

DRUGS (1)
  1. AEROLIN [Suspect]
     Indication: DRUG USE FOR UNKNOWN INDICATION
     Dates: end: 20041211

REACTIONS (4)
  - DEATH [None]
  - DRUG INEFFECTIVE [None]
  - MEDICATION ERROR [None]
  - SELF-MEDICATION [None]
